FAERS Safety Report 6326712-0 (Version None)
Quarter: 2009Q3

REPORT INFORMATION
  Report Type: 
  Country: None (occurrence: None)
  Receive Date: 20090825
  Receipt Date: 20090818
  Transmission Date: 20100115
  Serious: Yes (Other)
  Sender: FDA-Public Use
  Company Number: PHHY2009JP29097

PATIENT
  Sex: Female
  Weight: 36 kg

DRUGS (1)
  1. ZOMETA [Suspect]
     Indication: METASTASES TO BONE
     Dosage: 4 MG PER ADMINISTRATION
     Route: 042
     Dates: start: 20080718

REACTIONS (3)
  - BONE DISORDER [None]
  - OSTEONECROSIS [None]
  - TOOTHACHE [None]
